FAERS Safety Report 9292847 (Version 1)
Quarter: 2013Q2

REPORT INFORMATION
  Report Type: Spontaneous
  Country: AT (occurrence: AT)
  Receive Date: 20130516
  Receipt Date: 20130516
  Transmission Date: 20140414
  Serious: Yes (Hospitalization)
  Sender: FDA-Public Use
  Company Number: AT-PFIZER INC-2013146126

PATIENT
  Age: 28 Year
  Sex: Female

DRUGS (1)
  1. DALACIN [Suspect]
     Indication: PULPITIS DENTAL
     Dosage: UNK
     Dates: start: 201201, end: 201201

REACTIONS (6)
  - Rhinitis [Recovered/Resolved]
  - Epstein-Barr virus infection [Recovered/Resolved]
  - General physical health deterioration [Recovered/Resolved]
  - Lymphadenopathy [Recovered/Resolved]
  - Hepatic enzyme increased [Recovered/Resolved]
  - Drug eruption [Recovered/Resolved]
